FAERS Safety Report 8858532 (Version 1)
Quarter: 2012Q4

REPORT INFORMATION
  Report Type: 
  Country: PL (occurrence: PL)
  Receive Date: 20121024
  Receipt Date: 20121024
  Transmission Date: 20130627
  Serious: Yes (Other)
  Sender: FDA-Public Use
  Company Number: PL-ROCHE-1147329

PATIENT
  Sex: Female
  Weight: 90 kg

DRUGS (5)
  1. MABTHERA [Suspect]
     Indication: B-CELL LYMPHOMA
     Dosage: 375/m2
     Route: 042
     Dates: start: 200501, end: 200507
  2. CYCLOPHOSPHAMIDE [Concomitant]
     Route: 065
  3. VINCRISTINE [Concomitant]
     Route: 065
  4. ADRIAMYCIN [Concomitant]
     Route: 065
  5. PREDNISONE [Concomitant]
     Route: 065

REACTIONS (2)
  - Hypogammaglobulinaemia [Not Recovered/Not Resolved]
  - Infection [Unknown]
